FAERS Safety Report 10661380 (Version 1)
Quarter: 2014Q4

REPORT INFORMATION
  Report Type: Spontaneous
  Country: TR (occurrence: TR)
  Receive Date: 20141218
  Receipt Date: 20141218
  Transmission Date: 20150529
  Serious: Yes (Other)
  Sender: FDA-Public Use
  Company Number: TR-JNJFOC-20141207545

PATIENT
  Age: 35 Year
  Sex: Female

DRUGS (1)
  1. PALIPERIDONE PALMITATE [Suspect]
     Active Substance: PALIPERIDONE PALMITATE
     Indication: DELUSION
     Route: 030

REACTIONS (2)
  - Depression [Unknown]
  - Psychotic disorder [Unknown]
